FAERS Safety Report 5527590-X (Version None)
Quarter: 2007Q4

REPORT INFORMATION
  Report Type: 
  Country: None (occurrence: None)
  Receive Date: 20071128
  Receipt Date: 20071113
  Transmission Date: 20080405
  Serious: Yes (Other)
  Sender: FDA-Public Use
  Company Number: JP-ELI_LILLY_AND_COMPANY-JP200711004899

PATIENT
  Sex: Male
  Weight: 39.3 kg

DRUGS (5)
  1. SOMATROPIN [Suspect]
     Indication: GROWTH HORMONE DEFICIENCY
     Dosage: 1.2 MG, 5/W
     Route: 058
     Dates: start: 20050823, end: 20061009
  2. SOMATROPIN [Suspect]
     Dosage: 1.4 MG, 5/W
     Route: 058
     Dates: start: 20061010
  3. THYRADIN S [Concomitant]
     Indication: SECONDARY HYPOTHYROIDISM
     Dosage: 50 UG, DAILY (1/D)
     Route: 048
     Dates: start: 20050506
  4. CORTRIL [Concomitant]
     Indication: SECONDARY HYPOTHYROIDISM
     Dosage: 10 MG, 2/D
     Route: 048
     Dates: start: 20050509
  5. DESMOPRESSIN ACETATE [Concomitant]
     Indication: SECONDARY HYPOTHYROIDISM
     Dosage: 0.025 UG, 2/D
     Route: 045
     Dates: start: 20050514

REACTIONS (1)
  - CRANIOPHARYNGIOMA [None]
